FAERS Safety Report 10363483 (Version 1)
Quarter: 2014Q1

REPORT INFORMATION
  Report Type: Spontaneous
  Country: US (occurrence: None)
  Receive Date: 20140306
  Receipt Date: 20140306
  Transmission Date: 20141002
  Serious: Yes (Hospitalization)
  Sender: FDA-Public Use
  Company Number: 163-21880-13061532

PATIENT
  Age: 77 Year
  Sex: Male
  Weight: 74.84 kg

DRUGS (12)
  1. REVLIMID [Suspect]
     Indication: PLASMA CELL MYELOMA
     Dosage: 21 IN 21 D
     Route: 048
     Dates: start: 20110308
  2. UROXATRAL [Concomitant]
  3. DEXAMETHASONE [Concomitant]
  4. PREDNISONE [Concomitant]
  5. GLYBURIDE [Concomitant]
  6. ACTONEL [Concomitant]
  7. NEXIUM [Concomitant]
  8. PROGRAF [Concomitant]
  9. FISH OIL [Concomitant]
  10. NEUPOGEN [Concomitant]
  11. SEPTRA [Concomitant]
  12. COZAAR [Concomitant]

REACTIONS (1)
  - Full blood count decreased [None]
